FAERS Safety Report 25532812 (Version 2)
Quarter: 2025Q3

REPORT INFORMATION
  Report Type: Spontaneous
  Country: EU (occurrence: EU)
  Receive Date: 20250709
  Receipt Date: 20250711
  Transmission Date: 20251021
  Serious: Yes (Other)
  Sender: SANDOZ
  Company Number: EU-MLMSERVICE-20250321-PI450539-00082-1

PATIENT
  Age: 65 Year
  Sex: Male

DRUGS (18)
  1. CARBOPLATIN [Suspect]
     Active Substance: CARBOPLATIN
     Indication: Non-small cell lung cancer stage IV
     Route: 065
     Dates: start: 2023, end: 2023
  2. CARBOPLATIN [Suspect]
     Active Substance: CARBOPLATIN
     Indication: Lung adenocarcinoma
     Route: 065
  3. CARBOPLATIN [Suspect]
     Active Substance: CARBOPLATIN
     Indication: Lung adenocarcinoma stage IV
  4. CARBOPLATIN [Suspect]
     Active Substance: CARBOPLATIN
     Indication: Pericardial effusion
  5. PEMETREXED [Suspect]
     Active Substance: PEMETREXED
     Indication: Non-small cell lung cancer stage IV
     Route: 065
     Dates: start: 2023, end: 2023
  6. PEMETREXED [Suspect]
     Active Substance: PEMETREXED
     Indication: Lung adenocarcinoma
     Route: 065
     Dates: start: 202204
  7. PEMETREXED [Suspect]
     Active Substance: PEMETREXED
     Indication: Lung adenocarcinoma stage IV
  8. PEMETREXED [Suspect]
     Active Substance: PEMETREXED
     Indication: Non-small cell lung cancer
  9. PEMETREXED [Suspect]
     Active Substance: PEMETREXED
     Indication: Pericardial effusion
  10. CARBOPLATIN [Concomitant]
     Active Substance: CARBOPLATIN
     Indication: Non-small cell lung cancer
     Route: 065
  11. Immunglobulin [Concomitant]
     Indication: Primary progressive multiple sclerosis
     Route: 042
  12. MEFLOQUINE [Concomitant]
     Active Substance: MEFLOQUINE
     Indication: Primary progressive multiple sclerosis
     Route: 065
     Dates: start: 2019
  13. MEFLOQUINE [Concomitant]
     Active Substance: MEFLOQUINE
     Indication: Non-small cell lung cancer
  14. PEMBROLIZUMAB [Concomitant]
     Active Substance: PEMBROLIZUMAB
     Indication: Lung adenocarcinoma
     Route: 065
  15. PEMBROLIZUMAB [Concomitant]
     Active Substance: PEMBROLIZUMAB
     Indication: Non-small cell lung cancer stage IV
     Route: 065
     Dates: start: 2023
  16. PEMBROLIZUMAB [Concomitant]
     Active Substance: PEMBROLIZUMAB
     Indication: Lung adenocarcinoma stage IV
  17. PEMBROLIZUMAB [Concomitant]
     Active Substance: PEMBROLIZUMAB
     Indication: Non-small cell lung cancer
  18. PEMBROLIZUMAB [Concomitant]
     Active Substance: PEMBROLIZUMAB
     Indication: Pericardial effusion

REACTIONS (3)
  - Tubulointerstitial nephritis [Unknown]
  - Renal tubular injury [Unknown]
  - Renal failure [Unknown]

NARRATIVE: CASE EVENT DATE: 20230101
